FAERS Safety Report 10992631 (Version 1)
Quarter: 2015Q2

REPORT INFORMATION
  Report Type: Spontaneous
  Country: US (occurrence: US)
  Receive Date: 20150406
  Receipt Date: 20150406
  Transmission Date: 20150821
  Serious: Yes (Hospitalization)
  Sender: FDA-Public Use
  Company Number: US-MALLINCKRODT-T201402883

PATIENT
  Sex: Female

DRUGS (3)
  1. ALEVE [Concomitant]
     Active Substance: NAPROXEN SODIUM
     Indication: PRODUCT USED FOR UNKNOWN INDICATION
     Dosage: 1 TAB BID X 3 WEEKS
     Dates: start: 201406
  2. OPTIRAY [Suspect]
     Active Substance: IOVERSOL
     Indication: COMPUTERISED TOMOGRAM ABDOMEN
     Dosage: 100 ML, SINGLE AT 2CC/SEC
     Route: 042
     Dates: start: 20140706, end: 20140706
  3. LISINOPRIL. [Concomitant]
     Active Substance: LISINOPRIL
     Indication: PRODUCT USED FOR UNKNOWN INDICATION
     Dosage: 5 MG DAILY

REACTIONS (1)
  - Renal tubular necrosis [Not Recovered/Not Resolved]
